FAERS Safety Report 9265584 (Version 3)
Quarter: 2013Q2

REPORT INFORMATION
  Report Type: Spontaneous
  Country: JP (occurrence: JP)
  Receive Date: 20130501
  Receipt Date: 20130607
  Transmission Date: 20140414
  Serious: Yes (Life-Threatening)
  Sender: FDA-Public Use
  Company Number: JP-BRISTOL-MYERS SQUIBB COMPANY-18823286

PATIENT
  Age: 84 Year
  Sex: Male

DRUGS (2)
  1. IRBETAN [Suspect]
     Indication: HYPERTENSION
     Dosage: INTERR 19APR13
     Route: 048
     Dates: start: 20130329
  2. ADALAT-CR [Concomitant]
     Indication: HYPERTENSION
     Route: 048

REACTIONS (3)
  - Blood creatine phosphokinase increased [Recovered/Resolved]
  - Aspartate aminotransferase increased [Recovering/Resolving]
  - Alanine aminotransferase increased [Recovering/Resolving]
